FAERS Safety Report 5835664-9 (Version None)
Quarter: 2008Q3

REPORT INFORMATION
  Report Type: 
  Country: None (occurrence: None)
  Receive Date: 20080722
  Receipt Date: 20080128
  Transmission Date: 20090109
  Serious: Yes (Other)
  Sender: FDA-Public Use
  Company Number: 2008BI002057

PATIENT
  Age: 32 Year
  Sex: Male
  Weight: 92.9874 kg

DRUGS (1)
  1. AVONEX [Suspect]
     Indication: MULTIPLE SCLEROSIS
     Dosage: 30 UG;QW;IM
     Route: 030
     Dates: start: 20080125

REACTIONS (3)
  - CONVULSION [None]
  - PAIN IN EXTREMITY [None]
  - TREMOR [None]
